FAERS Safety Report 7003832-9 (Version None)
Quarter: 2010Q3

REPORT INFORMATION
  Report Type: 
  Country: None (occurrence: None)
  Receive Date: 20100920
  Receipt Date: 20091202
  Transmission Date: 20110219
  Serious: No
  Sender: FDA-Public Use
  Company Number: US-WYE-H12499709

PATIENT
  Sex: Female

DRUGS (9)
  1. PRISTIQ [Suspect]
     Indication: DEPRESSION
     Route: 048
     Dates: start: 20090501, end: 20091001
  2. PRISTIQ [Suspect]
     Dates: start: 20091001, end: 20091001
  3. PRISTIQ [Suspect]
     Dosage: 1 NAND A 1/2 TABLETS DAILY
     Route: 048
     Dates: start: 20091001, end: 20090101
  4. PRISTIQ [Suspect]
     Route: 048
     Dates: start: 20090101, end: 20090101
  5. PRISTIQ [Suspect]
     Dosage: WEANED OFF BY TAKING 1/2 TABLET DAILY
     Route: 048
     Dates: start: 20090101, end: 20091122
  6. PERCOCET [Concomitant]
  7. SIMVASTATIN [Concomitant]
  8. LEVOTHYROXINE SODIUM [Concomitant]
  9. METOPROLOL [Concomitant]

REACTIONS (10)
  - ANXIETY [None]
  - CONFUSIONAL STATE [None]
  - CRYING [None]
  - DEPRESSION [None]
  - DRUG EFFECT DECREASED [None]
  - DRUG WITHDRAWAL SYNDROME [None]
  - FEELING ABNORMAL [None]
  - HEADACHE [None]
  - NAUSEA [None]
  - UNEVALUABLE EVENT [None]
